FAERS Safety Report 5789063-9 (Version None)
Quarter: 2008Q2

REPORT INFORMATION
  Report Type: 
  Country: None (occurrence: None)
  Receive Date: 20080626
  Receipt Date: 20080624
  Transmission Date: 20081010
  Serious: Yes (Life-Threatening, Other)
  Sender: FDA-Public Use
  Company Number: B0526732A

PATIENT
  Age: 74 Year
  Sex: Female

DRUGS (3)
  1. AUGMENTIN '125' [Suspect]
     Route: 065
  2. AUGMENTIN '125' [Suspect]
     Route: 065
  3. MINOXIDIL [Suspect]
     Route: 065

REACTIONS (2)
  - ANAPHYLACTIC SHOCK [None]
  - OVERDOSE [None]
